FAERS Safety Report 9374701 (Version 1)
Quarter: 2013Q2

REPORT INFORMATION
  Report Type: Spontaneous
  Country: CH (occurrence: CH)
  Receive Date: 20130628
  Receipt Date: 20130628
  Transmission Date: 20140414
  Serious: Yes (Hospitalization, Other)
  Sender: FDA-Public Use
  Company Number: CH-PFIZER INC-2002132536CH

PATIENT
  Age: 55 Year
  Sex: Male

DRUGS (2)
  1. SOMAC [Suspect]
     Dosage: 40 MG, QD
     Route: 048
     Dates: start: 20020705, end: 20020821
  2. FLOXAPEN [Suspect]
     Indication: EXTRADURAL ABSCESS
     Dosage: SOME G, QD (TOTAL DOSE 340 G)
     Route: 042
     Dates: start: 20020716, end: 20020823

REACTIONS (3)
  - Agranulocytosis [Recovered/Resolved]
  - Pyrexia [Recovered/Resolved]
  - C-reactive protein increased [Recovered/Resolved]
